FAERS Safety Report 7016826-4 (Version None)
Quarter: 2010Q3

REPORT INFORMATION
  Report Type: 
  Country: None (occurrence: None)
  Receive Date: 20100927
  Receipt Date: 20100915
  Transmission Date: 20110219
  Serious: Yes (Hospitalization)
  Sender: FDA-Public Use
  Company Number: JP-WATSON-2009-09068

PATIENT
  Sex: Male

DRUGS (9)
  1. RAPAFLO [Suspect]
     Indication: BLADDER OBSTRUCTION
     Dosage: 4 MG, BID
     Route: 048
     Dates: start: 20091006, end: 20091012
  2. GLUFAST [Suspect]
     Indication: HYPERGLYCAEMIA
     Dosage: 15 MG, DAILY
     Route: 048
     Dates: start: 20090814, end: 20091012
  3. EBRANTIL                           /00631801/ [Concomitant]
     Indication: BENIGN PROSTATIC HYPERPLASIA
     Dosage: 30 MG, DAILY
     Route: 065
     Dates: start: 20091006, end: 20091012
  4. PRERAN [Concomitant]
     Indication: HYPERTENSION
     Dosage: 0.5 MG, DAILY
     Route: 048
  5. DIOVAN                             /01319601/ [Concomitant]
     Indication: HYPERTENSION
     Dosage: 160 MG, DAILY
     Route: 048
  6. AZELASTINE HCL [Concomitant]
     Indication: HYPERTENSION
     Dosage: 8 MG, BID WITHOUT HEMODIALYSIS
     Route: 048
  7. REGPARA [Concomitant]
     Indication: HYPERPARATHYROIDISM
     Dosage: 25 MG, DAILY
     Route: 048
  8. MECOBALAMIN [Concomitant]
     Indication: NERVOUS SYSTEM DISORDER
     Dosage: 1.5 MG, DAILY
     Route: 048
  9. NEUROTROPIN(AN EXTRACT OBTAINED FROM INFLAMMATORY RABBIT SKIN INOCULA) [Concomitant]
     Indication: NERVOUS SYSTEM DISORDER
     Dosage: 12 IU DAILY
     Route: 048

REACTIONS (1)
  - HYPOGLYCAEMIA [None]
